FAERS Safety Report 6778797-5 (Version None)
Quarter: 2010Q2

REPORT INFORMATION
  Report Type: 
  Country: None (occurrence: None)
  Receive Date: 20100618
  Receipt Date: 20091217
  Transmission Date: 20101027
  Serious: No
  Sender: FDA-Public Use
  Company Number: A0835639A

PATIENT

DRUGS (1)
  1. HYCAMTIN [Suspect]

REACTIONS (1)
  - DISEASE PROGRESSION [None]
